FAERS Safety Report 7796898-X (Version None)
Quarter: 2011Q4

REPORT INFORMATION
  Report Type: 
  Country: None (occurrence: None)
  Receive Date: 20111005
  Receipt Date: 20110921
  Transmission Date: 20120403
  Serious: No
  Sender: FDA-Public Use
  Company Number: US-B.I. PHARMACEUTICALS,INC./RIDGEFIELD-2006-BP-12635BP

PATIENT
  Sex: Female

DRUGS (7)
  1. SYNTHROID [Concomitant]
  2. MICARDIS [Suspect]
     Indication: HYPERTENSION
     Dosage: 80 MG
     Route: 048
     Dates: start: 20060101, end: 20060101
  3. PREMARIN [Concomitant]
  4. NASACORT [Concomitant]
  5. GLUCOTROL XL [Concomitant]
  6. MICARDIS [Suspect]
     Dosage: 80 MG
     Route: 048
     Dates: start: 20080101, end: 20110920
  7. MICARDIS [Suspect]
     Dosage: 80 MG
     Route: 048
     Dates: start: 20110921

REACTIONS (4)
  - DYSGEUSIA [None]
  - JOINT SWELLING [None]
  - VENTRICULAR EXTRASYSTOLES [None]
  - DRUG INEFFECTIVE [None]
